FAERS Safety Report 22526913 (Version 1)
Quarter: 2023Q2

REPORT INFORMATION
  Report Type: Report from Study
  Country: NL (occurrence: NL)
  Receive Date: 20230606
  Receipt Date: 20230606
  Transmission Date: 20230721
  Serious: Yes (Hospitalization)
  Sender: FDA-Public Use
  Company Number: NL-TEVA-2023-NL-2894360

PATIENT
  Age: 80 Year
  Sex: Male
  Weight: 90.5 kg

DRUGS (35)
  1. DOXORUBICIN [Suspect]
     Active Substance: DOXORUBICIN
     Indication: Diffuse large B-cell lymphoma stage I
     Dosage: 25MG/M2 EVERY 3 WEEKS
     Route: 042
     Dates: start: 20221214, end: 20230103
  2. DOXORUBICIN [Suspect]
     Active Substance: DOXORUBICIN
     Dosage: 25MG/M2 EVERY 3 WEEKS
     Route: 042
     Dates: start: 20230207, end: 20230417
  3. VINCRISTINE [Suspect]
     Active Substance: VINCRISTINE
     Indication: Diffuse large B-cell lymphoma stage I
     Dosage: 1MG/M2 EVERY 3 WEEKS
     Route: 042
     Dates: start: 20221212, end: 20230103
  4. VINCRISTINE [Suspect]
     Active Substance: VINCRISTINE
     Dosage: 1MG/M2 EVERY 3 WEEKS
     Route: 042
     Dates: start: 20230207, end: 20230324
  5. PREDNISOLONE [Suspect]
     Active Substance: PREDNISOLONE
     Indication: Diffuse large B-cell lymphoma stage I
     Dosage: 100 MILLIGRAM DAILY;
     Route: 048
     Dates: start: 20221213, end: 20221216
  6. PREDNISOLONE [Suspect]
     Active Substance: PREDNISOLONE
     Dosage: 100 MILLIGRAM DAILY;
     Route: 048
     Dates: start: 20230103, end: 20230107
  7. PREDNISOLONE [Suspect]
     Active Substance: PREDNISOLONE
     Dosage: 80 MILLIGRAM DAILY; NUTRITION PROBE
     Route: 048
     Dates: start: 20230207, end: 20230212
  8. PREDNISOLONE [Suspect]
     Active Substance: PREDNISOLONE
     Dosage: 100 MILLIGRAM DAILY;
     Route: 051
     Dates: start: 20230227, end: 20230303
  9. PREDNISOLONE [Suspect]
     Active Substance: PREDNISOLONE
     Dosage: 100 MILLIGRAM DAILY;
     Route: 051
     Dates: start: 20230324, end: 20230328
  10. PREDNISOLONE [Suspect]
     Active Substance: PREDNISOLONE
     Dosage: 75 MILLIGRAM DAILY; DATE OF LAST DOSE PRIOR TO EVENT: 21-APR-2023
     Route: 051
     Dates: start: 20230417, end: 20230421
  11. EPCORITAMAB [Suspect]
     Active Substance: EPCORITAMAB
     Indication: Diffuse large B-cell lymphoma stage I
     Dosage: PRIMING DOSE: 0.16 MILLIGRAM, SINGLE
     Route: 058
     Dates: start: 20221212, end: 20221212
  12. EPCORITAMAB [Suspect]
     Active Substance: EPCORITAMAB
     Dosage: INTERMEDIATE DOSE: 0.8 MILLIGRAM
     Route: 058
     Dates: start: 20221219, end: 20221219
  13. EPCORITAMAB [Suspect]
     Active Substance: EPCORITAMAB
     Dosage: FULL DOSE: 48 MILLIGRAM, WEEKLY
     Route: 058
     Dates: start: 20221227, end: 20230117
  14. EPCORITAMAB [Suspect]
     Active Substance: EPCORITAMAB
     Dosage: FULL DOSE: 48 MILLIGRAM, EVERY 3 WEEKS
     Route: 058
     Dates: start: 20230207, end: 20230417
  15. RITUXIMAB [Suspect]
     Active Substance: RITUXIMAB
     Indication: Diffuse large B-cell lymphoma stage I
     Dosage: 375MG/M2 EVERY 3 WEEKS
     Route: 042
     Dates: start: 20221213, end: 20221213
  16. RITUXIMAB [Suspect]
     Active Substance: RITUXIMAB
     Dosage: 1400MG/M2 EVERY 3 WEEKS
     Route: 058
     Dates: start: 20230103, end: 20230103
  17. RITUXIMAB [Suspect]
     Active Substance: RITUXIMAB
     Dosage: 1400MG/M2 EVERY 3 WEEKS
     Route: 058
     Dates: start: 20230207, end: 20230417
  18. CYCLOPHOSPHAMIDE [Suspect]
     Active Substance: CYCLOPHOSPHAMIDE
     Indication: Diffuse large B-cell lymphoma stage I
     Dosage: 400MG/M2 EVERY 3 WEEKS
     Route: 042
     Dates: start: 20221213, end: 20230103
  19. CYCLOPHOSPHAMIDE [Suspect]
     Active Substance: CYCLOPHOSPHAMIDE
     Dosage: 400MG/M2 EVERY 3 WEEKS
     Route: 042
     Dates: start: 20230207, end: 20230324
  20. CLEMASTINE [Concomitant]
     Active Substance: CLEMASTINE
     Indication: Product used for unknown indication
     Dates: start: 20230417, end: 20230417
  21. ACETAMINOPHEN [Concomitant]
     Active Substance: ACETAMINOPHEN
     Indication: Product used for unknown indication
     Dates: start: 20230417, end: 20230417
  22. AMINOMIX 1 NOVUM [Concomitant]
     Indication: Product used for unknown indication
     Dates: start: 20230301
  23. BISACODYL [Concomitant]
     Active Substance: BISACODYL
     Indication: Product used for unknown indication
     Dates: start: 20230327
  24. ESOMEPRAZOLE [Concomitant]
     Active Substance: ESOMEPRAZOLE
     Indication: Product used for unknown indication
     Dates: start: 20230223
  25. GRANISETRON [Concomitant]
     Active Substance: GRANISETRON
     Indication: Product used for unknown indication
     Dates: start: 20230407, end: 20230421
  26. MAGNESIUM HYDROXIDE [Concomitant]
     Active Substance: MAGNESIUM HYDROXIDE
     Indication: Product used for unknown indication
     Dates: start: 20230314
  27. ACETAMINOPHEN [Concomitant]
     Active Substance: ACETAMINOPHEN
     Indication: Product used for unknown indication
     Dates: start: 20230309
  28. ROSUVASTATIN [Concomitant]
     Active Substance: ROSUVASTATIN
     Indication: Product used for unknown indication
     Dates: start: 20220602
  29. SOTALOL [Concomitant]
     Active Substance: SOTALOL
     Indication: Product used for unknown indication
     Dates: start: 20221118
  30. CALCIUM CARBONATE/MAGNESIUM CARBONATE [Concomitant]
     Indication: Product used for unknown indication
     Dates: start: 20230502
  31. DEXTROSE [Concomitant]
     Active Substance: DEXTROSE\DEXTROSE MONOHYDRATE
     Indication: Product used for unknown indication
     Dates: start: 20230417
  32. METOCLOPRAMIDE [Concomitant]
     Active Substance: METOCLOPRAMIDE
     Indication: Product used for unknown indication
     Dates: start: 20230405
  33. ONDANSETRON [Concomitant]
     Active Substance: ONDANSETRON
     Indication: Product used for unknown indication
     Dates: start: 20230410
  34. PANTOPRAZOLE SODIUM [Concomitant]
     Active Substance: PANTOPRAZOLE SODIUM
     Indication: Product used for unknown indication
     Dates: start: 20230417, end: 20230421
  35. POTASSIUM CHLORIDE [Concomitant]
     Active Substance: POTASSIUM CHLORIDE
     Indication: Product used for unknown indication
     Dates: start: 20230428

REACTIONS (2)
  - Pyrexia [Recovered/Resolved]
  - Chills [Recovered/Resolved]

NARRATIVE: CASE EVENT DATE: 20230103
